FAERS Safety Report 12453985 (Version 3)
Quarter: 2016Q3

REPORT INFORMATION
  Report Type: Report from Study
  Country: CA (occurrence: CA)
  Receive Date: 20160610
  Receipt Date: 20160802
  Transmission Date: 20161109
  Serious: Yes (Other)
  Sender: FDA-Public Use
  Company Number: CA-AMGEN-CANSL2016071814

PATIENT
  Age: 63 Year
  Sex: Female

DRUGS (4)
  1. METHOTREXATE. [Concomitant]
     Active Substance: METHOTREXATE
     Dosage: UNK
  2. LOSEC [Concomitant]
     Active Substance: OMEPRAZOLE
     Dosage: UNK
  3. ENBREL [Suspect]
     Active Substance: ETANERCEPT
     Indication: RHEUMATOID ARTHRITIS
     Dosage: 50 MG, UNK
     Route: 065
     Dates: start: 20140221
  4. LYRICA [Concomitant]
     Active Substance: PREGABALIN
     Dosage: UNK

REACTIONS (9)
  - Barrett^s oesophagus [Unknown]
  - Diarrhoea [Unknown]
  - Joint swelling [Unknown]
  - Arthritis [Unknown]
  - Pain [Unknown]
  - Drug dose omission [Unknown]
  - Musculoskeletal stiffness [Unknown]
  - Arthralgia [Unknown]
  - Weight decreased [Unknown]
